FAERS Safety Report 6540368-3 (Version None)
Quarter: 2010Q1

REPORT INFORMATION
  Report Type: 
  Country: None (occurrence: None)
  Receive Date: 20100115
  Receipt Date: 20100105
  Transmission Date: 20100710
  Serious: Yes (Death)
  Sender: FDA-Public Use
  Company Number: US-MERCK-1001USA00469

PATIENT
  Age: 60 Year
  Sex: Female

DRUGS (7)
  1. COZAAR [Suspect]
     Route: 048
  2. ZESTRIL [Suspect]
     Route: 048
  3. VALPROIC ACID [Suspect]
     Route: 048
  4. CLONAZEPAM [Suspect]
     Route: 048
  5. METFORMIN [Suspect]
     Route: 048
  6. ZOCOR [Suspect]
     Route: 048
  7. HALOPERIDOL [Suspect]
     Route: 048

REACTIONS (2)
  - COMPLETED SUICIDE [None]
  - DRUG TOXICITY [None]
